FAERS Safety Report 12609306 (Version 1)
Quarter: 2016Q3

REPORT INFORMATION
  Report Type: Report from Study
  Country: FR (occurrence: FR)
  Receive Date: 20160801
  Receipt Date: 20160801
  Transmission Date: 20161109
  Serious: Yes (Other)
  Sender: FDA-Public Use
  Company Number: FR-ROCHE-1804648

PATIENT
  Sex: Female

DRUGS (11)
  1. RANIBIZUMAB [Suspect]
     Active Substance: RANIBIZUMAB
     Dosage: 0.5 MG, (LEFT EYE)
     Route: 050
     Dates: start: 20140528
  2. RANIBIZUMAB [Suspect]
     Active Substance: RANIBIZUMAB
     Dosage: (LEFT EYE)
     Route: 050
     Dates: start: 20140807
  3. RANIBIZUMAB [Suspect]
     Active Substance: RANIBIZUMAB
     Dosage: (LEFT EYE)
     Route: 050
     Dates: start: 20140908
  4. BETADINE [Concomitant]
     Active Substance: POVIDONE-IODINE
     Indication: INFECTION PROPHYLAXIS
     Dosage: UNK
     Route: 065
  5. RANIBIZUMAB [Suspect]
     Active Substance: RANIBIZUMAB
     Dosage: (LEFT EYE)
     Route: 050
     Dates: start: 20150212
  6. RANIBIZUMAB [Suspect]
     Active Substance: RANIBIZUMAB
     Dosage: (LEFT EYE)
     Route: 050
     Dates: start: 20150316
  7. RANIBIZUMAB [Suspect]
     Active Substance: RANIBIZUMAB
     Dosage: 0.5 MG, (LEFT EYE)
     Route: 050
     Dates: start: 20140630
  8. RANIBIZUMAB [Suspect]
     Active Substance: RANIBIZUMAB
     Dosage: (LEFT EYE)
     Route: 050
     Dates: start: 20141006
  9. RANIBIZUMAB [Suspect]
     Active Substance: RANIBIZUMAB
     Dosage: (LEFT EYE)
     Route: 050
     Dates: start: 20141222
  10. RANIBIZUMAB [Suspect]
     Active Substance: RANIBIZUMAB
     Indication: DIABETIC RETINAL OEDEMA
     Dosage: 0.5 MG, (LEFT EYE)
     Route: 050
     Dates: start: 20140423, end: 20140423
  11. RANIBIZUMAB [Suspect]
     Active Substance: RANIBIZUMAB
     Dosage: (LEFT EYE)
     Route: 050
     Dates: start: 20150420

REACTIONS (5)
  - Pain in extremity [Unknown]
  - Keratitis [Recovered/Resolved]
  - Fall [Unknown]
  - Headache [Recovered/Resolved]
  - Procedural pain [Recovered/Resolved]

NARRATIVE: CASE EVENT DATE: 20140424
